FAERS Safety Report 16619602 (Version 2)
Quarter: 2019Q3

REPORT INFORMATION
  Report Type: Spontaneous
  Country: CN (occurrence: CN)
  Receive Date: 20190723
  Receipt Date: 20190807
  Transmission Date: 20191004
  Serious: Yes (Hospitalization, Other)
  Sender: FDA-Public Use
  Company Number: CN-PFIZER INC-2019291011

PATIENT
  Age: 46 Year
  Sex: Male
  Weight: 72 kg

DRUGS (11)
  1. MYCOPHENOLATE MOFETIL. [Concomitant]
     Active Substance: MYCOPHENOLATE MOFETIL
     Indication: IMMUNOSUPPRESSION
     Dosage: 0.75 G, 2X/DAY (DISPERSIBLE TABLETS)
     Route: 048
     Dates: start: 20170826, end: 20170908
  2. VORICONAZOLE. [Suspect]
     Active Substance: VORICONAZOLE
     Indication: PNEUMONIA
     Dosage: 0.2 G, 2X/DAY  (0.2 G, Q 12H. IVGTT (DOUBLE THE FIRST DAY DOSE)
     Route: 042
     Dates: start: 20170914, end: 20170918
  3. NIFEDIPINE. [Concomitant]
     Active Substance: NIFEDIPINE
     Dosage: 30 MG, 1X/DAY (30 MG, BID, QD, PO)CONTROLLED RELEASE TABLETS
     Route: 048
     Dates: start: 20170826
  4. METOPROLOL SUCCINATE. [Concomitant]
     Active Substance: METOPROLOL SUCCINATE
     Dosage: 47.5 MG, 1X/DAY (47.5 MG, QD, PO AFTER SURGERY)SUSTAINED-RELEASE TABLETS
     Route: 048
     Dates: start: 20170826
  5. TACROLIMUS. [Concomitant]
     Active Substance: TACROLIMUS
     Indication: IMMUNOSUPPRESSION
     Dosage: 3 MG, (BID, QD),CAPSULES
     Route: 048
     Dates: start: 20170826, end: 20170914
  6. GLICLAZIDE [Interacting]
     Active Substance: GLICLAZIDE
     Indication: BLOOD GLUCOSE INCREASED
     Dosage: 30 MG, 1X/DAY (30 MG, QD, PO)MODIFIED RELEASE TABLETS
     Route: 048
     Dates: start: 20170908, end: 20170921
  7. MYCOPHENOLATE MOFETIL. [Concomitant]
     Active Substance: MYCOPHENOLATE MOFETIL
     Dosage: 2 MG, 2X/DAY (REDUCED)
     Route: 048
     Dates: start: 20170908, end: 20170914
  8. SULBACTAM SODIUM [Concomitant]
     Active Substance: SULBACTAM SODIUM
     Dosage: 3 G, 3X/DAY ((2:1) WAS GIVEN FOR INJECTION 3 G, Q 8 H. IVGTT)
     Route: 042
     Dates: start: 20170914
  9. INSULIN GLARGINE [Concomitant]
     Active Substance: INSULIN GLARGINE
     Indication: DIABETES MELLITUS MANAGEMENT
     Dosage: UNK (10U, QD, IH)
     Dates: start: 20170921
  10. TAMOXIFEN [Concomitant]
     Active Substance: TAMOXIFEN
     Dosage: 0.5 MG, 2X/DAY
     Route: 048
     Dates: start: 20170929
  11. METHYLPREDNISOLONE. [Concomitant]
     Active Substance: METHYLPREDNISOLONE
     Indication: IMMUNOSUPPRESSANT DRUG THERAPY
     Dosage: 12 MG, 1X/DAY (TABLETS)
     Route: 048
     Dates: start: 20170826

REACTIONS (8)
  - Palpitations [Recovered/Resolved]
  - Hallucination [Recovered/Resolved]
  - Drug interaction [Recovering/Resolving]
  - Electrolyte imbalance [Recovered/Resolved]
  - Visual impairment [Recovered/Resolved]
  - Vision blurred [Recovered/Resolved]
  - Chest discomfort [Recovered/Resolved]
  - Insomnia [Recovered/Resolved]

NARRATIVE: CASE EVENT DATE: 201709
